FAERS Safety Report 4340897-7 (Version None)
Quarter: 2004Q2

REPORT INFORMATION
  Report Type: 
  Country: None (occurrence: None)
  Receive Date: 20040413
  Receipt Date: 20040401
  Transmission Date: 20050107
  Serious: Yes (Death, Other)
  Sender: FDA-Public Use
  Company Number: 163-20785-04030575

PATIENT
  Sex: Female
  Weight: 68 kg

DRUGS (3)
  1. THALOMID [Suspect]
     Indication: METASTASES TO CENTRAL NERVOUS SYSTEM
     Dosage: 200 MG, QD, ORAL
     Route: 048
     Dates: start: 20040316, end: 20040322
  2. THALOMID [Suspect]
     Indication: NON-SMALL CELL LUNG CANCER
     Dosage: 200 MG, QD, ORAL
     Route: 048
     Dates: start: 20040316, end: 20040322
  3. RADIATION [Suspect]

REACTIONS (3)
  - CONVULSION [None]
  - DISEASE PROGRESSION [None]
  - METASTASES TO CENTRAL NERVOUS SYSTEM [None]
